FAERS Safety Report 4402193-9 (Version None)
Quarter: 2004Q3

REPORT INFORMATION
  Report Type: 
  Country: None (occurrence: None)
  Receive Date: 20040716
  Receipt Date: 20030515
  Transmission Date: 20050211
  Serious: No
  Sender: FDA-Public Use
  Company Number: 02100-UK-03-0005

PATIENT
  Age: 67 Year
  Sex: Male

DRUGS (5)
  1. CILOSTAZOL [Suspect]
     Indication: PERIPHERAL VASCULAR DISORDER
     Dosage: 100 MG, ORAL
     Route: 048
     Dates: start: 20030424, end: 20030501
  2. DIGOXIN [Concomitant]
  3. LISINOPRIL [Concomitant]
  4. FRUSEMIDE [Concomitant]
  5. FLUVASTATIN SODIUM [Concomitant]

REACTIONS (2)
  - ATRIAL FIBRILLATION [None]
  - CHEST PAIN [None]
